FAERS Safety Report 19986615 (Version 1)
Quarter: 2021Q4

REPORT INFORMATION
  Report Type: Spontaneous
  Country: FR (occurrence: FR)
  Receive Date: 20211022
  Receipt Date: 20211022
  Transmission Date: 20220303
  Serious: Yes (Congenital Anomaly)
  Sender: FDA-Public Use
  Company Number: FR-ABBVIE-21K-056-4126888-00

PATIENT
  Sex: Male

DRUGS (1)
  1. VALPROATE SODIUM [Suspect]
     Active Substance: VALPROATE SODIUM
     Indication: Maternal exposure timing unspecified
     Route: 064

REACTIONS (7)
  - Hypertonic bladder [Unknown]
  - Congenital urethral anomaly [Unknown]
  - Foot deformity [Unknown]
  - Spine malformation [Unknown]
  - Spina bifida [Unknown]
  - Finger deformity [Unknown]
  - Foetal exposure during pregnancy [Unknown]
